FAERS Safety Report 6747769-9 (Version None)
Quarter: 2010Q2

REPORT INFORMATION
  Report Type: 
  Country: None (occurrence: None)
  Receive Date: 20100528
  Receipt Date: 20100519
  Transmission Date: 20101027
  Serious: Yes (Hospitalization)
  Sender: FDA-Public Use
  Company Number: US-ELI_LILLY_AND_COMPANY-US201005005710

PATIENT
  Age: 84 Year
  Sex: Male

DRUGS (2)
  1. CIALIS [Suspect]
     Dosage: 10 MG, AS NEEDED
  2. VIAGRA [Concomitant]

REACTIONS (2)
  - HOSPITALISATION [None]
  - NAUSEA [None]
